FAERS Safety Report 13322492 (Version 3)
Quarter: 2017Q2

REPORT INFORMATION
  Report Type: Spontaneous
  Country: US (occurrence: US)
  Receive Date: 20170309
  Receipt Date: 20170410
  Transmission Date: 20170830
  Serious: No
  Sender: FDA-Public Use
  Company Number: US-PFIZER INC-2017103280

PATIENT
  Age: 53 Year
  Sex: Female
  Weight: 93 kg

DRUGS (3)
  1. LYRICA [Suspect]
     Active Substance: PREGABALIN
     Indication: HERPES ZOSTER
     Dosage: 75 MG, TWICE A DAY (ONE IN THE MORNING AND ONE AT NIGHT)
     Route: 048
     Dates: start: 20170119, end: 201702
  2. PREDNISONE. [Concomitant]
     Active Substance: PREDNISONE
     Dosage: 9 MG, DAILY (4-1MG TABLETS AND 1-5MG TABLET EACH DAY)
     Dates: start: 2014
  3. PREDNISONE. [Concomitant]
     Active Substance: PREDNISONE
     Dosage: 9 MG, DAILY (4-1MG TABLETS AND 1-5MG TABLET EACH DAY)
     Dates: start: 2014

REACTIONS (3)
  - Therapeutic response unexpected [Unknown]
  - Pre-existing condition improved [Unknown]
  - Drug effect incomplete [Unknown]
